FAERS Safety Report 16764905 (Version 1)
Quarter: 2019Q3

REPORT INFORMATION
  Report Type: Spontaneous
  Country: US (occurrence: US)
  Receive Date: 20190903
  Receipt Date: 20190903
  Transmission Date: 20191005
  Serious: Yes (Other)
  Sender: FDA-Public Use
  Company Number: US-AUROBINDO-AUR-APL-2019-057601

PATIENT

DRUGS (2)
  1. METHYLPREDNISOLONE. [Suspect]
     Active Substance: METHYLPREDNISOLONE
     Indication: AUTOIMMUNE COLITIS
     Dosage: 100 MILLIGRAM, TWO TIMES A DAY FOR 3 DAYS
     Route: 042
  2. INFLIXIMAB [Suspect]
     Active Substance: INFLIXIMAB
     Indication: AUTOIMMUNE COLITIS
     Dosage: 5 MILLIGRAM/KILOGRAM
     Route: 065

REACTIONS (8)
  - Listeriosis [Unknown]
  - Endophthalmitis [Unknown]
  - Uveitis [Unknown]
  - Visual impairment [Unknown]
  - Eye pain [Unknown]
  - Toxicity to various agents [Unknown]
  - Condition aggravated [Unknown]
  - Ocular hyperaemia [Unknown]
